FAERS Safety Report 7908931-2 (Version None)
Quarter: 2011Q4

REPORT INFORMATION
  Report Type: 
  Country: None (occurrence: None)
  Receive Date: 20111108
  Receipt Date: 20111027
  Transmission Date: 20120403
  Serious: No
  Sender: FDA-Public Use
  Company Number: 2011SP005630

PATIENT
  Age: 46 Year
  Sex: Female
  Weight: 72 kg

DRUGS (3)
  1. CERAZETTE (DESOGESTREL /00754001/) [Suspect]
     Indication: ENDOMETRIOSIS
     Dosage: PO
     Route: 048
     Dates: start: 20110101, end: 20110101
  2. QUETIAPINE [Concomitant]
  3. VALPROIC ACID [Concomitant]

REACTIONS (5)
  - FLUID RETENTION [None]
  - WEIGHT INCREASED [None]
  - MENORRHAGIA [None]
  - SWELLING [None]
  - SWELLING FACE [None]
